FAERS Safety Report 7715122-7 (Version None)
Quarter: 2011Q3

REPORT INFORMATION
  Report Type: 
  Country: None (occurrence: None)
  Receive Date: 20110829
  Receipt Date: 20110817
  Transmission Date: 20111222
  Serious: Yes (Other)
  Sender: FDA-Public Use
  Company Number: PHHY2011CA71266

PATIENT
  Sex: Female

DRUGS (5)
  1. ALPHAGAN P [Concomitant]
  2. AREDIA [Suspect]
     Dosage: 90 MG, UNK
     Route: 042
     Dates: start: 20090901, end: 20110729
  3. CLONAZEPAM [Concomitant]
     Dosage: 0.5 MG, BID
     Dates: start: 20080101
  4. CITALOPRAM [Concomitant]
     Dosage: 10 MG, DAILY
     Dates: start: 20080101
  5. OLANZAPINE [Concomitant]
     Dosage: 2.5 MG, UNK

REACTIONS (2)
  - SKIN SENSITISATION [None]
  - BURSITIS INFECTIVE [None]
